FAERS Safety Report 6304909-3 (Version None)
Quarter: 2009Q3

REPORT INFORMATION
  Report Type: 
  Country: None (occurrence: None)
  Receive Date: 20090811
  Receipt Date: 20090731
  Transmission Date: 20100115
  Serious: Yes (Hospitalization)
  Sender: FDA-Public Use
  Company Number: CH-ELI_LILLY_AND_COMPANY-CH200908000021

PATIENT
  Sex: Female

DRUGS (6)
  1. CYMBALTA [Interacting]
     Indication: DEPRESSION
     Dosage: 60 MG, DAILY (1/D)
     Route: 048
     Dates: start: 20080301
  2. ZYPREXA [Suspect]
     Indication: SCHIZOPHRENIA, PARANOID TYPE
     Dosage: 10 MG, DAILY (1/D)
     Route: 048
     Dates: start: 20010101
  3. ZYPREXA [Suspect]
     Dosage: 15 MG, DAILY (1/D)
     Dates: end: 20090701
  4. ZYPREXA [Suspect]
     Dosage: 10 MG, DAILY (1/D)
     Dates: start: 20090728
  5. SOLIAN [Interacting]
     Indication: SCHIZOPHRENIA, PARANOID TYPE
     Dosage: 200 MG, DAILY (1/D)
     Route: 048
     Dates: start: 20090701, end: 20090728
  6. ANTABUSE [Concomitant]
     Indication: ALCOHOL USE
     Dosage: UNK UNK,
     Route: 048
     Dates: start: 20080601

REACTIONS (3)
  - DRUG INTERACTION [None]
  - MYOCLONIC EPILEPSY [None]
  - WEIGHT INCREASED [None]
